FAERS Safety Report 6684511-4 (Version None)
Quarter: 2010Q2

REPORT INFORMATION
  Report Type: 
  Country: None (occurrence: None)
  Receive Date: 20100416
  Receipt Date: 20100413
  Transmission Date: 20101027
  Serious: Yes (Hospitalization)
  Sender: FDA-Public Use
  Company Number: US-BRISTOL-MYERS SQUIBB COMPANY-15051238

PATIENT
  Age: 41 Year
  Sex: Male

DRUGS (1)
  1. REYATAZ [Suspect]
     Indication: HIV INFECTION
     Dosage: ROUTE: ENTERAL TUBE

REACTIONS (3)
  - BACTERAEMIA [None]
  - DYSPHAGIA [None]
  - PNEUMONIA KLEBSIELLA [None]
